FAERS Safety Report 19180537 (Version 1)
Quarter: 2021Q2

REPORT INFORMATION
  Report Type: Spontaneous
  Country: BR (occurrence: BR)
  Receive Date: 20210426
  Receipt Date: 20210426
  Transmission Date: 20210717
  Serious: Yes (Hospitalization)
  Sender: FDA-Public Use
  Company Number: BR-SA-2021SA110781

PATIENT
  Age: 65 Year
  Sex: Female

DRUGS (1)
  1. LANTUS [Suspect]
     Active Substance: INSULIN GLARGINE
     Dosage: UNK UNK, QD
     Route: 065

REACTIONS (5)
  - Product dose omission issue [Unknown]
  - Vomiting [Unknown]
  - Dehydration [Unknown]
  - Blood glucose increased [Unknown]
  - Wrong technique in product usage process [Unknown]
